FAERS Safety Report 4949236-1 (Version None)
Quarter: 2006Q1

REPORT INFORMATION
  Report Type: 
  Country: None (occurrence: None)
  Receive Date: 20060321
  Receipt Date: 20060315
  Transmission Date: 20060701
  Serious: Yes (Hospitalization)
  Sender: FDA-Public Use
  Company Number: DE-SANOFI-SYNTHELABO-A04200600303

PATIENT
  Sex: Female

DRUGS (3)
  1. ELOXATIN [Suspect]
     Indication: COLON CANCER
     Route: 041
     Dates: start: 20060313, end: 20060313
  2. PREDNISOLONE [Concomitant]
     Indication: PREMEDICATION
     Route: 065
  3. KEVATRIL [Concomitant]
     Indication: PREMEDICATION
     Route: 065

REACTIONS (2)
  - CONCUSSION [None]
  - SYNCOPE [None]
